FAERS Safety Report 22833756 (Version 3)
Quarter: 2024Q2

REPORT INFORMATION
  Report Type: Spontaneous
  Country: FR (occurrence: FR)
  Receive Date: 20230817
  Receipt Date: 20240426
  Transmission Date: 20240716
  Serious: Yes (Other)
  Sender: FDA-Public Use
  Company Number: None

PATIENT
  Age: 56 Year
  Sex: Female
  Weight: 65 kg

DRUGS (14)
  1. PACLITAXEL [Suspect]
     Active Substance: PACLITAXEL
     Indication: Cervix carcinoma
     Dosage: 300 MILLIGRAM 1 TOTAL
     Route: 042
     Dates: start: 20230628, end: 20230628
  2. PACLITAXEL [Suspect]
     Active Substance: PACLITAXEL
     Indication: Cervix carcinoma
  3. CARBOPLATIN [Concomitant]
     Active Substance: CARBOPLATIN
     Indication: Cervix carcinoma
     Dosage: 610 MILLIGRAM, 1 TOTAL
     Route: 042
     Dates: start: 20230628, end: 20230628
  4. ONDANSETRON [Concomitant]
     Active Substance: ONDANSETRON
     Indication: Chemotherapy side effect prophylaxis
     Dosage: 8 MILLIGRAM 1 CYCLICAL
     Route: 065
     Dates: start: 20230628, end: 20230628
  5. KEYTRUDA [Concomitant]
     Active Substance: PEMBROLIZUMAB
     Indication: Cervix carcinoma
     Dosage: 200 MILLIGRAM 1 TOTAL
     Route: 042
     Dates: start: 20230628, end: 20230628
  6. AVASTIN [Concomitant]
     Active Substance: BEVACIZUMAB
     Indication: Cervix carcinoma
     Dosage: 950 MILLIGRAM 1 TOTAL
     Route: 042
     Dates: start: 20230628, end: 20230628
  7. VOGALENE [Concomitant]
     Active Substance: METOPIMAZINE
     Indication: Vomiting
     Dosage: 1 DOSAGE FORM (AS NECESSARY)
     Route: 048
     Dates: start: 20230628, end: 20230701
  8. CIMETIDINE [Concomitant]
     Active Substance: CIMETIDINE
     Indication: Chemotherapy side effect prophylaxis
     Dosage: 200 MILLIGRAM 1 CYLICAL
     Route: 048
     Dates: start: 20230628, end: 20230628
  9. DEXCHLORPHENIRAMINE [Concomitant]
     Active Substance: DEXCHLORPHENIRAMINE
     Indication: Chemotherapy side effect prophylaxis
     Dosage: 5 MILLIGRAM 1 CYLICAL
     Route: 065
     Dates: start: 20230628, end: 20230628
  10. APREPITANT [Concomitant]
     Active Substance: APREPITANT
     Indication: Chemotherapy side effect prophylaxis
     Dosage: 150 MILLIGRAM 1 TOTAL
     Route: 048
     Dates: start: 20230628, end: 20230628
  11. LEVOTHYROXINE [Concomitant]
     Active Substance: LEVOTHYROXINE\LEVOTHYROXINE SODIUM
     Dosage: 652 MICROGRAM, QW
     Route: 048
  12. HERBALS\HOMEOPATHICS\PASSIFLORA INCARNATA FLOWER [Concomitant]
     Active Substance: HERBALS\HOMEOPATHICS\PASSIFLORA INCARNATA FLOWER
     Dosage: UNK
     Route: 048
  13. ALPRAZOLAM [Concomitant]
     Active Substance: ALPRAZOLAM
     Dosage: UNK
     Route: 048
  14. NEBIVOLOL [Concomitant]
     Active Substance: NEBIVOLOL
     Dosage: 2.5 MILLIGRAM, QD
     Route: 048

REACTIONS (3)
  - Rash macular [Recovering/Resolving]
  - Erythema [Recovering/Resolving]
  - Neutropenia [Recovered/Resolved]

NARRATIVE: CASE EVENT DATE: 20230702
